FAERS Safety Report 6254698-6 (Version None)
Quarter: 2009Q3

REPORT INFORMATION
  Report Type: 
  Country: None (occurrence: None)
  Receive Date: 20090702
  Receipt Date: 20090622
  Transmission Date: 20100115
  Serious: Yes (Hospitalization)
  Sender: FDA-Public Use
  Company Number: FR-PFIZER INC-2008039573

PATIENT
  Age: 35 Year

DRUGS (5)
  1. VFEND [Suspect]
     Route: 048
  2. AZITHROMYCIN [Suspect]
  3. BROMAZEPAM [Suspect]
  4. SOLUPRED [Suspect]
  5. SULFAMETHOXAZOLE [Suspect]

REACTIONS (14)
  - AGITATION [None]
  - BLOOD ALKALINE PHOSPHATASE INCREASED [None]
  - BLOOD BILIRUBIN INCREASED [None]
  - COMA [None]
  - CONFUSIONAL STATE [None]
  - CYTOLYTIC HEPATITIS [None]
  - DRUG TOXICITY [None]
  - GAMMA-GLUTAMYLTRANSFERASE INCREASED [None]
  - HYPOVOLAEMIA [None]
  - NEUROTOXICITY [None]
  - POISONING DELIBERATE [None]
  - RENAL FAILURE ACUTE [None]
  - RHABDOMYOLYSIS [None]
  - SUICIDE ATTEMPT [None]
